FAERS Safety Report 8589981-2 (Version None)
Quarter: 2012Q3

REPORT INFORMATION
  Report Type: 
  Country: None (occurrence: None)
  Receive Date: 20120813
  Receipt Date: 20120803
  Transmission Date: 20120928
  Serious: Yes (Hospitalization)
  Sender: FDA-Public Use
  Company Number: IT-ELI_LILLY_AND_COMPANY-IT201208000635

PATIENT
  Sex: Male

DRUGS (2)
  1. CARBOPLATIN [Concomitant]
     Indication: LUNG ADENOCARCINOMA
     Dosage: 590 MG, UNKNOWN
     Route: 042
     Dates: start: 20120531, end: 20120531
  2. ALIMTA [Suspect]
     Indication: LUNG ADENOCARCINOMA
     Dosage: 950 MG, PER CYCLE
     Route: 042
     Dates: start: 20120531, end: 20120531

REACTIONS (3)
  - DEPRESSED LEVEL OF CONSCIOUSNESS [None]
  - HYPOTENSION [None]
  - DIARRHOEA [None]
